FAERS Safety Report 7372367-6 (Version None)
Quarter: 2011Q1

REPORT INFORMATION
  Report Type: 
  Country: None (occurrence: None)
  Receive Date: 20110324
  Receipt Date: 20110322
  Transmission Date: 20110831
  Serious: Yes (Disabling)
  Sender: FDA-Public Use
  Company Number: US-PFIZER INC-2011063734

PATIENT
  Sex: Male
  Weight: 90.703 kg

DRUGS (6)
  1. LIPITOR [Suspect]
     Indication: BLOOD CHOLESTEROL INCREASED
     Dosage: 40 MG, 1X/DAY
     Route: 048
  2. AVANDIA [Concomitant]
     Indication: DIABETES MELLITUS
     Dosage: 8 MG, 1X/DAY
     Route: 048
  3. RELAFEN [Concomitant]
     Indication: ARTHRALGIA
     Dosage: 750 MG, 1X/DAY
     Route: 048
  4. GLUCOVANCE [Concomitant]
     Indication: DIABETES MELLITUS
     Dosage: 10/1000
     Route: 048
  5. NICOTINAMIDE [Concomitant]
     Dosage: 1000 IU, 2X/DAY
     Route: 048
  6. GLUCOSAMINE [Concomitant]
     Dosage: UNK
     Route: 048

REACTIONS (1)
  - KNEE DEFORMITY [None]
